FAERS Safety Report 9341600 (Version 3)
Quarter: 2013Q4

REPORT INFORMATION
  Report Type: Report from Study
  Country: DE (occurrence: DE)
  Receive Date: 20130611
  Receipt Date: 20131224
  Transmission Date: 20140711
  Serious: Yes (Life-Threatening, Hospitalization, Other)
  Sender: FDA-Public Use
  Company Number: PHHY2013DE057601

PATIENT
  Sex: Male

DRUGS (7)
  1. FTY 720 [Suspect]
     Indication: MULTIPLE SCLEROSIS
     Dosage: 0.5 MG, QD
     Route: 048
     Dates: start: 20121120, end: 20130512
  2. ALLOPURINOL [Concomitant]
     Dosage: 300 MG, ONCE DAILY
  3. FLUCONAZOLE [Concomitant]
     Dosage: 200 MG, ONCE DAILY
  4. CIPROBAY                           /01429801/ [Concomitant]
     Dosage: 500 MG, TWICE DAILY
  5. GRANULOCYTE COLONY-STIMULATING FACTOR NOS [Concomitant]
     Route: 065
  6. PREDNISOLONE [Concomitant]
     Dosage: 100 MG, ONCE DAILY
     Route: 042
  7. PANTOPRAZOLE [Concomitant]
     Dosage: 40 MG, ONCE DAILY

REACTIONS (8)
  - Diffuse large B-cell lymphoma stage I [Recovered/Resolved]
  - Metastases to spine [Recovered/Resolved]
  - Renal pain [Recovered/Resolved]
  - Weight decreased [Recovered/Resolved]
  - Fatigue [Recovered/Resolved]
  - Asthenia [Recovered/Resolved]
  - Haemoglobin decreased [Unknown]
  - Red blood cell count decreased [Unknown]
